FAERS Safety Report 19145713 (Version 1)
Quarter: 2021Q2

REPORT INFORMATION
  Report Type: Report from Study
  Country: US (occurrence: US)
  Receive Date: 20210416
  Receipt Date: 20210416
  Transmission Date: 20210717
  Serious: Yes (Death)
  Sender: FDA-Public Use
  Company Number: US-ASTRAZENECA-2021A306915

PATIENT
  Sex: Male

DRUGS (19)
  1. COREG [Concomitant]
     Active Substance: CARVEDILOL
  2. PANTOPRAZOLE SODIUM. [Concomitant]
     Active Substance: PANTOPRAZOLE SODIUM
  3. OMEGA 3 [Concomitant]
     Active Substance: OMEGA-3 FATTY ACIDS
  4. LEVOTHYROXINE SODIUM. [Concomitant]
     Active Substance: LEVOTHYROXINE SODIUM
  5. FISH OIL [Concomitant]
     Active Substance: FISH OIL
  6. GLUCOSAMINE [Concomitant]
     Active Substance: GLUCOSAMINE
  7. CHONDROITIN [Concomitant]
     Active Substance: CHONDROITIN
  8. GABAPENTIN. [Concomitant]
     Active Substance: GABAPENTIN
  9. AMLODIPINE BESYLATE. [Concomitant]
     Active Substance: AMLODIPINE BESYLATE
  10. TAGRISSO [Suspect]
     Active Substance: OSIMERTINIB
     Indication: LUNG NEOPLASM MALIGNANT
     Route: 048
  11. VITAMIN B12 [Concomitant]
     Active Substance: CYANOCOBALAMIN
  12. FINASTERIDE. [Concomitant]
     Active Substance: FINASTERIDE
  13. XGEVA [Concomitant]
     Active Substance: DENOSUMAB
  14. CRESTOR [Suspect]
     Active Substance: ROSUVASTATIN CALCIUM
     Route: 048
  15. ASPIRIN. [Concomitant]
     Active Substance: ASPIRIN
  16. POTASSIUM CHLORIDE. [Concomitant]
     Active Substance: POTASSIUM CHLORIDE
  17. VITAMIN D [Concomitant]
     Active Substance: VITAMIN D NOS
  18. PREDNISONE. [Concomitant]
     Active Substance: PREDNISONE
  19. COLACE [Concomitant]
     Active Substance: DOCUSATE SODIUM

REACTIONS (1)
  - Death [Fatal]
